FAERS Safety Report 18231656 (Version 2)
Quarter: 2020Q3

REPORT INFORMATION
  Report Type: Spontaneous
  Country: BH (occurrence: BH)
  Receive Date: 20200904
  Receipt Date: 20200907
  Transmission Date: 20201103
  Serious: Yes (Other)
  Sender: FDA-Public Use
  Company Number: NVSC2020BH240308

PATIENT
  Age: 22 Year
  Sex: Male

DRUGS (8)
  1. VIGAMOX [Suspect]
     Active Substance: MOXIFLOXACIN HYDROCHLORIDE
     Indication: ACANTHAMOEBA KERATITIS
     Dosage: UNK
     Route: 065
  2. BROLENE (PROPAMIDINE ISETHIONATE) [Suspect]
     Active Substance: PROPAMIDINE ISETHIONATE
     Indication: KLEBSIELLA INFECTION
     Dosage: UNK
     Route: 065
  3. TOBRADEX [Concomitant]
     Active Substance: DEXAMETHASONE\TOBRAMYCIN
     Indication: ULCERATIVE KERATITIS
     Dosage: UNK
     Route: 065
  4. BROLENE (PROPAMIDINE ISETHIONATE) [Suspect]
     Active Substance: PROPAMIDINE ISETHIONATE
     Indication: STENOTROPHOMONAS INFECTION
  5. MAXITROL [Suspect]
     Active Substance: DEXAMETHASONE\NEOMYCIN SULFATE\POLYMYXIN B SULFATE
     Indication: ACANTHAMOEBA KERATITIS
     Dosage: UNK
     Route: 065
  6. VANCOMYCIN [Concomitant]
     Active Substance: VANCOMYCIN
     Indication: ULCERATIVE KERATITIS
     Dosage: UNK
     Route: 065
  7. GENTAMYCIN [Suspect]
     Active Substance: GENTAMICIN
     Indication: ACANTHAMOEBA KERATITIS
     Dosage: UNK
     Route: 065
  8. CIPROFLOXACINE [Concomitant]
     Active Substance: CIPROFLOXACIN
     Indication: ULCERATIVE KERATITIS
     Dosage: UNK
     Route: 065

REACTIONS (4)
  - Product use in unapproved indication [Unknown]
  - Condition aggravated [Unknown]
  - Drug ineffective [Unknown]
  - Acanthamoeba keratitis [Unknown]
